FAERS Safety Report 19583317 (Version 2)
Quarter: 2021Q3

REPORT INFORMATION
  Report Type: Spontaneous
  Country: FR (occurrence: FR)
  Receive Date: 20210720
  Receipt Date: 20210809
  Transmission Date: 20211014
  Serious: Yes (Hospitalization, Other)
  Sender: FDA-Public Use
  Company Number: FR-ACCORD-232181

PATIENT
  Age: 32 Year
  Sex: Male

DRUGS (7)
  1. ZOPICLONE [Concomitant]
     Active Substance: ZOPICLONE
     Indication: DEPRESSION
  2. BUPRENORPHINE. [Concomitant]
     Active Substance: BUPRENORPHINE
     Indication: DEPRESSION
  3. BACLOFEN. [Suspect]
     Active Substance: BACLOFEN
     Indication: ANXIETY
  4. COCAINE [Suspect]
     Active Substance: COCAINE
     Indication: PRODUCT USED FOR UNKNOWN INDICATION
  5. DIAZEPAM. [Suspect]
     Active Substance: DIAZEPAM
     Indication: ANXIETY
  6. KETAMINE [Concomitant]
     Active Substance: KETAMINE
  7. FLUOXETINE [Suspect]
     Active Substance: FLUOXETINE HYDROCHLORIDE
     Indication: DEPRESSION

REACTIONS (9)
  - Hallucination [Recovered/Resolved]
  - Logorrhoea [Recovered/Resolved]
  - Suicide attempt [Unknown]
  - Agitation [Recovered/Resolved]
  - Disorientation [Recovered/Resolved]
  - Altered state of consciousness [Recovered/Resolved]
  - Incoherent [Recovered/Resolved]
  - Skin abrasion [Recovered/Resolved]
  - Suicidal ideation [Recovered/Resolved]
